FAERS Safety Report 9671263 (Version 1)
Quarter: 2013Q4

REPORT INFORMATION
  Report Type: Spontaneous
  Country: NL (occurrence: NL)
  Receive Date: 20131106
  Receipt Date: 20131106
  Transmission Date: 20140711
  Serious: Yes (Other)
  Sender: FDA-Public Use
  Company Number: NL-CELGENEUS-114-21880-13104872

PATIENT
  Sex: Male
  Weight: 99 kg

DRUGS (4)
  1. REVLIMID [Suspect]
     Indication: PLASMACYTOMA
     Route: 048
  2. XGEVA [Suspect]
     Indication: PLASMACYTOMA
     Route: 065
     Dates: start: 2012, end: 2013
  3. MARCUMAR [Concomitant]
     Indication: PRODUCT USED FOR UNKNOWN INDICATION
     Route: 065
  4. BISOPROLOL [Concomitant]
     Indication: PRODUCT USED FOR UNKNOWN INDICATION
     Route: 065

REACTIONS (1)
  - Osteonecrosis of jaw [Recovered/Resolved]
